FAERS Safety Report 6719992-0 (Version None)
Quarter: 2010Q2

REPORT INFORMATION
  Report Type: 
  Country: None (occurrence: None)
  Receive Date: 20100511
  Receipt Date: 20100505
  Transmission Date: 20101027
  Serious: Yes (Life-Threatening)
  Sender: FDA-Public Use
  Company Number: US-MERCK-1004USA00197

PATIENT
  Age: 13 Year
  Sex: Male
  Weight: 73 kg

DRUGS (3)
  1. SINGULAIR [Suspect]
     Indication: ASTHMA
     Route: 048
     Dates: start: 20080101, end: 20100304
  2. ADVAIR DISKUS 100/50 [Concomitant]
     Route: 065
  3. ZOLOFT [Concomitant]
     Route: 065

REACTIONS (1)
  - SUICIDE ATTEMPT [None]
